FAERS Safety Report 4872549-9 (Version None)
Quarter: 2006Q1

REPORT INFORMATION
  Report Type: 
  Country: None (occurrence: None)
  Receive Date: 20060103
  Receipt Date: 20051221
  Transmission Date: 20060701
  Serious: Yes (Hospitalization)
  Sender: FDA-Public Use
  Company Number: SE200512003714

PATIENT
  Age: 71 Year
  Sex: Female

DRUGS (3)
  1. FORTEO [Suspect]
     Indication: OSTEOPOROSIS
     Dosage: 20 UG, DAILY (1/D), SUBCUTANEOUS
     Route: 058
     Dates: start: 20041207, end: 20051205
  2. FORTEO PEN (FORTEO PEN) PEN DISPOSABLE [Concomitant]
  3. METOPROLOL TARTRATE [Concomitant]

REACTIONS (4)
  - ARRHYTHMIA [None]
  - ATRIAL FIBRILLATION [None]
  - DRUG INEFFECTIVE [None]
  - PALPITATIONS [None]
